FAERS Safety Report 9771243 (Version 1)
Quarter: 2013Q4

REPORT INFORMATION
  Report Type: Spontaneous
  Country: FR (occurrence: FR)
  Receive Date: 20131218
  Receipt Date: 20131218
  Transmission Date: 20140711
  Serious: Yes (Death, Other)
  Sender: FDA-Public Use
  Company Number: PHHY2013FR145498

PATIENT
  Age: 20 Year
  Sex: Female

DRUGS (1)
  1. TRAMADOL [Suspect]

REACTIONS (6)
  - Death [Fatal]
  - Completed suicide [Unknown]
  - Neurological symptom [Unknown]
  - Psychiatric symptom [Unknown]
  - Gastrointestinal disorder [Unknown]
  - Intentional overdose [Unknown]
